FAERS Safety Report 6424648-8 (Version None)
Quarter: 2009Q4

REPORT INFORMATION
  Report Type: 
  Country: None (occurrence: None)
  Receive Date: 20091103
  Receipt Date: 20091020
  Transmission Date: 20100525
  Serious: Yes (Hospitalization)
  Sender: FDA-Public Use
  Company Number: TR-BAYER-200937291GPV

PATIENT
  Age: 26 Year
  Sex: Female

DRUGS (1)
  1. YASMIN [Suspect]
     Indication: CONTRACEPTION
     Route: 048

REACTIONS (10)
  - ASTHENIA [None]
  - BLINDNESS [None]
  - CONTUSION [None]
  - EAR PAIN [None]
  - GRAND MAL CONVULSION [None]
  - HEADACHE [None]
  - MUSCLE CONTRACTURE [None]
  - NAUSEA [None]
  - UNEVALUABLE EVENT [None]
  - VOMITING [None]
